FAERS Safety Report 12831258 (Version 1)
Quarter: 2016Q4

REPORT INFORMATION
  Report Type: Spontaneous
  Country: US (occurrence: US)
  Receive Date: 20161008
  Receipt Date: 20161008
  Transmission Date: 20170207
  Serious: Yes (Hospitalization, Other)
  Sender: FDA-Public Use
  Company Number: US-AMGEN-USASP2016135713

PATIENT
  Age: 82 Year
  Sex: Female

DRUGS (2)
  1. TELMISARTAN. [Concomitant]
     Active Substance: TELMISARTAN
     Indication: HYPERTENSION
  2. PROLIA [Suspect]
     Active Substance: DENOSUMAB
     Indication: OSTEOPOROSIS POSTMENOPAUSAL
     Dosage: 60 MG, Q6MO
     Route: 065

REACTIONS (9)
  - Asthenia [Not Recovered/Not Resolved]
  - Hip fracture [Unknown]
  - Parathyroidectomy [Unknown]
  - Bone disorder [Unknown]
  - Knee deformity [Unknown]
  - Peroneal nerve palsy [Unknown]
  - Unevaluable event [Unknown]
  - Fall [Unknown]
  - Hypotension [Not Recovered/Not Resolved]

NARRATIVE: CASE EVENT DATE: 201504
